FAERS Safety Report 19964234 (Version 2)
Quarter: 2021Q4

REPORT INFORMATION
  Report Type: Report from Study
  Country: US (occurrence: US)
  Receive Date: 20211018
  Receipt Date: 20211027
  Transmission Date: 20220304
  Serious: Yes (Other)
  Sender: FDA-Public Use
  Company Number: US-JNJFOC-20211018788

PATIENT
  Age: 55 Year
  Sex: Female
  Weight: 85.35 kg

DRUGS (8)
  1. SPRAVATO [Suspect]
     Active Substance: ESKETAMINE
     Indication: Depression
     Dosage: 8 DOSES
     Dates: start: 20210721, end: 20210819
  2. SPRAVATO [Suspect]
     Active Substance: ESKETAMINE
     Dosage: 4 DOSES
     Dates: start: 20210825, end: 20210920
  3. SPRAVATO [Suspect]
     Active Substance: ESKETAMINE
     Dosage: RECENT DOSE
     Dates: start: 20211007, end: 20211007
  4. IRON [Concomitant]
     Active Substance: IRON
     Route: 065
  5. LITHIUM CARBONATE [Concomitant]
     Active Substance: LITHIUM CARBONATE
     Dosage: 3 CAPSULES, 1 TIME PER DAY FOR 30 DAYS
     Route: 048
  6. PAMELOR [Concomitant]
     Active Substance: NORTRIPTYLINE HYDROCHLORIDE
     Dosage: 2 CAPSULES, 1 TIME PER DAY, FOR 30 DAYS.
     Route: 048
  7. VYVANSE [Concomitant]
     Active Substance: LISDEXAMFETAMINE DIMESYLATE
     Dosage: 1 CAPSULE, 1 TIME PER DAY, FOR 30 DAYS
     Route: 048
  8. INVEGA [Concomitant]
     Active Substance: PALIPERIDONE
     Dosage: 1 TABLET, 1 TIME PER DAY FOR 30 DAYS.
     Route: 048

REACTIONS (2)
  - Blood pressure increased [Recovered/Resolved]
  - Dissociation [Recovered/Resolved]

NARRATIVE: CASE EVENT DATE: 20211007
